FAERS Safety Report 20832646 (Version 1)
Quarter: 2022Q2

REPORT INFORMATION
  Report Type: 
  Country: None (occurrence: None)
  Receive Date: 20220516
  Receipt Date: 20220516
  Transmission Date: 20220721
  Serious: No
  Sender: FDA-Public Use
  Company Number: FR-ROCHE-3097019

PATIENT

DRUGS (5)
  1. RIVOTRIL [Suspect]
     Active Substance: CLONAZEPAM
  2. BROMAZEPAM [Suspect]
     Active Substance: BROMAZEPAM
  3. LYRICA [Suspect]
     Active Substance: PREGABALIN
  4. TRAMADOL [Suspect]
     Active Substance: TRAMADOL
  5. DESLORATADINE [Suspect]
     Active Substance: DESLORATADINE

REACTIONS (7)
  - Drug abuse [None]
  - Pneumonia aspiration [None]
  - Hypotension [None]
  - Altered state of consciousness [None]
  - Multisystem inflammatory syndrome [None]
  - Hyperleukocytosis [None]
  - Overdose [None]

NARRATIVE: CASE EVENT DATE: 20220401
